FAERS Safety Report 18079298 (Version 1)
Quarter: 2020Q3

REPORT INFORMATION
  Report Type: Spontaneous
  Country: US (occurrence: US)
  Receive Date: 20200727
  Receipt Date: 20200727
  Transmission Date: 20201103
  Serious: Yes (Hospitalization)
  Sender: FDA-Public Use
  Company Number: None

PATIENT
  Age: 77 Year
  Sex: Male

DRUGS (35)
  1. AZITHROMYCIN ANHYDROUS. [Concomitant]
     Active Substance: AZITHROMYCIN ANHYDROUS
  2. MONTELUKAST [Concomitant]
     Active Substance: MONTELUKAST SODIUM
  3. PREDNISONE. [Concomitant]
     Active Substance: PREDNISONE
  4. VIAGRA [Concomitant]
     Active Substance: SILDENAFIL CITRATE
  5. AMLODIPINE [Concomitant]
     Active Substance: AMLODIPINE BESYLATE
  6. DILT?XR [Concomitant]
     Active Substance: DILTIAZEM
  7. ECONAZOLE. [Concomitant]
     Active Substance: ECONAZOLE NITRATE
  8. IMITREX [Concomitant]
     Active Substance: SUMATRIPTAN SUCCINATE
  9. LASIX [Concomitant]
     Active Substance: FUROSEMIDE
  10. TRIAMCINOLON CRE [Concomitant]
  11. CYCLOSPORINE. [Concomitant]
     Active Substance: CYCLOSPORINE
  12. TACROLIMUS. [Concomitant]
     Active Substance: TACROLIMUS
  13. ELIQUIS [Concomitant]
     Active Substance: APIXABAN
  14. ISOMETH/APAP/DICHLOR [Concomitant]
  15. KEFLEX [Concomitant]
     Active Substance: CEPHALEXIN
  16. PANTOPRAZOLE [Concomitant]
     Active Substance: PANTOPRAZOLE
  17. SINGULAIR [Concomitant]
     Active Substance: MONTELUKAST SODIUM
  18. VANCOMYCIN [Concomitant]
     Active Substance: VANCOMYCIN
  19. VITAMIN A [Concomitant]
     Active Substance: VITAMIN A
  20. CARB/LEVO ER [Concomitant]
  21. CEPHALEXIN. [Concomitant]
     Active Substance: CEPHALEXIN
  22. FUROSEMIDE. [Concomitant]
     Active Substance: FUROSEMIDE
  23. MYSOLINE [Concomitant]
     Active Substance: PRIMIDONE
  24. PROBIOTIC [Concomitant]
     Active Substance: PROBIOTICS NOS
  25. RASAGILINE. [Concomitant]
     Active Substance: RASAGILINE
  26. APAP/CODEINE [Concomitant]
     Active Substance: ACETAMINOPHEN\CODEINE PHOSPHATE
  27. GENGRAF [Concomitant]
     Active Substance: CYCLOSPORINE
  28. ONDANSETRON [Concomitant]
     Active Substance: ONDANSETRON
  29. SUMATRIPTAN. [Concomitant]
     Active Substance: SUMATRIPTAN
  30. MYFORTIC [Suspect]
     Active Substance: MYCOPHENOLATE SODIUM
     Indication: RENAL TRANSPLANT
     Dosage: 1 TAB. (360MG ) QD PO
     Route: 048
     Dates: start: 20130801
  31. ACETAMIN [Concomitant]
     Active Substance: ACETAMINOPHEN
  32. BACLOFEN. [Concomitant]
     Active Substance: BACLOFEN
  33. CIALIS [Concomitant]
     Active Substance: TADALAFIL
  34. CLODERM CRE [Concomitant]
  35. HYDROCO/APAP [Concomitant]
     Active Substance: ACETAMINOPHEN\HYDROCODONE

REACTIONS (3)
  - Urinary tract infection [None]
  - Atrial fibrillation [None]
  - Dyspnoea [None]

NARRATIVE: CASE EVENT DATE: 20200711
